FAERS Safety Report 17289539 (Version 4)
Quarter: 2021Q4

REPORT INFORMATION
  Report Type: Report from Study
  Country: FR (occurrence: FR)
  Receive Date: 20200120
  Receipt Date: 20211217
  Transmission Date: 20220303
  Serious: Yes (Death, Hospitalization, Other)
  Sender: FDA-Public Use
  Company Number: FR-TAKEDA-2019TUS058432

PATIENT
  Sex: Female
  Weight: 55 kg

DRUGS (3)
  1. DEXAMETHASONE [Suspect]
     Active Substance: DEXAMETHASONE
     Indication: Plasma cell myeloma
     Dosage: 20 MILLIGRAM (START DATE:28-JAN-2019)
     Route: 048
     Dates: end: 20190514
  2. IXAZOMIB [Suspect]
     Active Substance: IXAZOMIB
     Indication: Plasma cell myeloma
     Dosage: 3 MILLIGRAM (START DATE:28-JAN-2019)
     Route: 048
     Dates: end: 20190514
  3. REVLIMID [Suspect]
     Active Substance: LENALIDOMIDE
     Indication: Plasma cell myeloma
     Dosage: 5 MILLIGRAM (START DATE:28-JAN-2019)
     Route: 048
     Dates: end: 20190514

REACTIONS (14)
  - General physical health deterioration [Fatal]
  - Septic embolus [Recovered/Resolved]
  - Facial paralysis [Recovered/Resolved]
  - Hemiparesis [Recovered/Resolved]
  - Listeriosis [Recovered/Resolved]
  - Brain abscess [Recovered/Resolved]
  - Neurologic neglect syndrome [Recovered/Resolved]
  - Cerebral ischaemia [Recovered/Resolved]
  - Renal failure [Recovered/Resolved]
  - Blood pressure increased [Recovered/Resolved]
  - Thrombocytopenia [Unknown]
  - Anaemia [Recovering/Resolving]
  - Weight increased [Unknown]
  - Oedema peripheral [Recovering/Resolving]

NARRATIVE: CASE EVENT DATE: 20190125
